FAERS Safety Report 15233369 (Version 1)
Quarter: 2018Q3

REPORT INFORMATION
  Report Type: Spontaneous
  Country: CA (occurrence: CA)
  Receive Date: 20180802
  Receipt Date: 20180802
  Transmission Date: 20181010
  Serious: Yes (Life-Threatening, Hospitalization, Disabling)
  Sender: FDA-Public Use
  Company Number: CA-TEVA-2018-CA-934998

PATIENT
  Age: 44 Year
  Sex: Female
  Weight: 41 kg

DRUGS (12)
  1. VENLAFAXINE XR [Concomitant]
     Active Substance: VENLAFAXINE HYDROCHLORIDE
  2. LAX?A?DAY [Concomitant]
  3. SENNOSIDES. [Concomitant]
     Active Substance: SENNOSIDES
  4. ONDANSETRON [Concomitant]
     Active Substance: ONDANSETRON
  5. LANSOPRAZOLE. [Concomitant]
     Active Substance: LANSOPRAZOLE
  6. NOZINAN [Concomitant]
     Active Substance: LEVOMEPROMAZINE
  7. TYLENOL [Concomitant]
     Active Substance: ACETAMINOPHEN
  8. METHYLPREDNISOLONE. [Suspect]
     Active Substance: METHYLPREDNISOLONE
     Indication: IMMUNE RECONSTITUTION INFLAMMATORY SYNDROME
     Route: 042
  9. NABILONE [Concomitant]
     Active Substance: NABILONE
  10. INSULIN [Concomitant]
     Active Substance: INSULIN NOS
  11. CELEBREX [Concomitant]
     Active Substance: CELECOXIB
  12. CLONAZEPAM. [Concomitant]
     Active Substance: CLONAZEPAM

REACTIONS (2)
  - Alanine aminotransferase increased [Recovering/Resolving]
  - Blood alkaline phosphatase increased [Recovering/Resolving]
